FAERS Safety Report 19473890 (Version 2)
Quarter: 2021Q3

REPORT INFORMATION
  Report Type: Spontaneous
  Country: US (occurrence: US)
  Receive Date: 20210629
  Receipt Date: 20210702
  Transmission Date: 20211014
  Serious: Yes (Life-Threatening, Other)
  Sender: FDA-Public Use
  Company Number: US-ASTRAZENECA-2021A567211

PATIENT

DRUGS (1)
  1. SEROQUEL [Suspect]
     Active Substance: QUETIAPINE FUMARATE
     Dosage: SEROQUEL 200 MG EITHER ONCE OR TWICE DAILY
     Route: 048

REACTIONS (21)
  - Aspiration [Unknown]
  - Skull fracture [Unknown]
  - Loss of consciousness [Recovered/Resolved]
  - Muscular weakness [Unknown]
  - Sensory loss [Unknown]
  - Pneumonia [Unknown]
  - Fall [Recovered/Resolved with Sequelae]
  - Weight decreased [Unknown]
  - Visual field defect [Unknown]
  - Wrong technique in product usage process [Unknown]
  - Dysphagia [Not Recovered/Not Resolved]
  - Diplopia [Unknown]
  - Starvation [Not Recovered/Not Resolved]
  - Conversion disorder [Unknown]
  - Pharyngitis [Not Recovered/Not Resolved]
  - Choking [Unknown]
  - Cerebral haemorrhage [Unknown]
  - Bipolar disorder [Not Recovered/Not Resolved]
  - Asthenia [Not Recovered/Not Resolved]
  - Dizziness [Unknown]
  - Cranial nerve injury [Unknown]
